FAERS Safety Report 25596260 (Version 2)
Quarter: 2025Q3

REPORT INFORMATION
  Report Type: Spontaneous
  Country: US (occurrence: US)
  Receive Date: 20250723
  Receipt Date: 20250807
  Transmission Date: 20251020
  Serious: Yes (Other)
  Sender: Kenvue
  Company Number: US-KENVUE-20250704555

PATIENT
  Age: 30 Year
  Sex: Female

DRUGS (2)
  1. NEUTROGENA BEACH DEFENSE WATER PLUS SUN BARRIER SUNSCREEN BROAD SPECTR [Suspect]
     Active Substance: AVOBENZONE\HOMOSALATE\OCTISALATE\OCTOCRYLENE\OXYBENZONE
     Indication: Prophylaxis against solar radiation
     Dosage: ENOUGH TO COVER ENTIRE BODY EVERY HOUR FOR 5 HOURS
     Route: 061
     Dates: start: 20250704
  2. TITANIUM DIOXIDE\ZINC OXIDE [Suspect]
     Active Substance: TITANIUM DIOXIDE\ZINC OXIDE
     Indication: Product used for unknown indication
     Dosage: REAPPLIED EVERY HOUR FOR 5 HOURS
     Route: 061
     Dates: start: 20250704

REACTIONS (3)
  - Burns third degree [Not Recovered/Not Resolved]
  - Burns second degree [Not Recovered/Not Resolved]
  - Photosensitivity reaction [Unknown]

NARRATIVE: CASE EVENT DATE: 20250701
